FAERS Safety Report 17489674 (Version 1)
Quarter: 2020Q1

REPORT INFORMATION
  Report Type: Spontaneous
  Country: US (occurrence: US)
  Receive Date: 20200303
  Receipt Date: 20200303
  Transmission Date: 20200409
  Serious: Yes (Life-Threatening, Hospitalization, Other)
  Sender: FDA-Public Use
  Company Number: US-AMERICAN REGENT INC-2020000518

PATIENT
  Age: 65 Year
  Sex: Male

DRUGS (10)
  1. EPINEPHRINE INJECTION, USP (0517-1071-01) [Suspect]
     Active Substance: EPINEPHRINE
     Indication: VENTRICULAR FIBRILLATION
  2. AMIODARONE [Suspect]
     Active Substance: AMIODARONE
     Indication: VENTRICULAR FIBRILLATION
  3. SODIUM BICARBONATE INJECTION, USP (0639-25) [Suspect]
     Active Substance: SODIUM BICARBONATE
     Indication: VENTRICULAR FIBRILLATION
  4. AMIODARONE [Suspect]
     Active Substance: AMIODARONE
     Indication: CARDIAC ARREST
     Dosage: UNK
     Route: 065
  5. MAGNESIUM SULFATE INJECTION, USP (2602-25) [Suspect]
     Active Substance: MAGNESIUM SULFATE
     Indication: CARDIAC ARREST
     Dosage: 2 GRAM
     Route: 065
  6. MAGNESIUM SULFATE INJECTION, USP (2602-25) [Suspect]
     Active Substance: MAGNESIUM SULFATE
     Indication: VENTRICULAR FIBRILLATION
  7. EPINEPHRINE INJECTION, USP (0517-1071-01) [Suspect]
     Active Substance: EPINEPHRINE
     Indication: CARDIAC ARREST
     Dosage: 1 MILLIGRAM
     Route: 065
  8. SODIUM BICARBONATE INJECTION, USP (0639-25) [Suspect]
     Active Substance: SODIUM BICARBONATE
     Indication: CARDIAC ARREST
     Dosage: 1 AMPOULE
     Route: 065
  9. ESMOLOL HYDROCHLORIDE INJECTION (0517-1810-01) [Suspect]
     Active Substance: ESMOLOL HYDROCHLORIDE
     Indication: VENTRICULAR FIBRILLATION
  10. ESMOLOL HYDROCHLORIDE INJECTION (0517-1810-01) [Suspect]
     Active Substance: ESMOLOL HYDROCHLORIDE
     Indication: CARDIAC ARREST
     Dosage: UNK
     Route: 065

REACTIONS (3)
  - Product use in unapproved indication [Unknown]
  - Ventricular fibrillation [Recovering/Resolving]
  - Drug ineffective for unapproved indication [Recovering/Resolving]
